FAERS Safety Report 8378047-2 (Version None)
Quarter: 2012Q2

REPORT INFORMATION
  Report Type: 
  Country: None (occurrence: None)
  Receive Date: 20120522
  Receipt Date: 20120507
  Transmission Date: 20120825
  Serious: No
  Sender: FDA-Public Use
  Company Number: US-ASTRAZENECA-2012SE29308

PATIENT
  Age: 73 Year
  Sex: Male
  Weight: 88 kg

DRUGS (5)
  1. ATENOLOL [Concomitant]
  2. LISINOPRIL [Concomitant]
  3. VYTORIN [Suspect]
     Route: 065
  4. LEPIDINE [Concomitant]
  5. CRESTOR [Suspect]
     Route: 048

REACTIONS (3)
  - MALAISE [None]
  - ADVERSE EVENT [None]
  - FATIGUE [None]
